FAERS Safety Report 11038749 (Version 8)
Quarter: 2019Q1

REPORT INFORMATION
  Report Type: Spontaneous
  Country: US (occurrence: US)
  Receive Date: 20150416
  Receipt Date: 20190328
  Transmission Date: 20190417
  Serious: No
  Sender: FDA-Public Use
  Company Number: US-PFIZER INC-2015128672

PATIENT
  Age: 82 Year
  Sex: Female

DRUGS (1)
  1. AROMASIN [Suspect]
     Active Substance: EXEMESTANE
     Indication: BREAST CANCER
     Dosage: 25 MG, ONCE A DAY
     Route: 048

REACTIONS (4)
  - Malaise [Unknown]
  - Hypoacusis [Unknown]
  - Asthenia [Unknown]
  - Confusional state [Unknown]
